FAERS Safety Report 6534966-0 (Version None)
Quarter: 2010Q1

REPORT INFORMATION
  Report Type: 
  Country: None (occurrence: None)
  Receive Date: 20100111
  Receipt Date: 20100111
  Transmission Date: 20100710
  Serious: No
  Sender: FDA-Public Use
  Company Number: None

PATIENT
  Age: 66 Year
  Sex: Male
  Weight: 92.5 kg

DRUGS (2)
  1. DIVALPROEX SODIUM [Suspect]
     Indication: MOOD ALTERED
     Dosage: 5 TAB AT BEDTIME PO
     Route: 048
     Dates: start: 20091115
  2. DIVALPROEX SODIUM [Suspect]
     Indication: TREMOR
     Dosage: 5 TAB AT BEDTIME PO
     Route: 048
     Dates: start: 20091115

REACTIONS (6)
  - CONDITION AGGRAVATED [None]
  - DEPRESSION [None]
  - IMPULSIVE BEHAVIOUR [None]
  - IRRITABILITY [None]
  - PRODUCT SUBSTITUTION ISSUE [None]
  - TREMOR [None]
